FAERS Safety Report 7726376-5 (Version None)
Quarter: 2011Q3

REPORT INFORMATION
  Report Type: 
  Country: None (occurrence: None)
  Receive Date: 20110902
  Receipt Date: 20110830
  Transmission Date: 20111222
  Serious: Yes (Other)
  Sender: FDA-Public Use
  Company Number: US-SANOFI-AVENTIS-2011SA055809

PATIENT
  Age: 71 Year
  Sex: Female

DRUGS (14)
  1. ASPIRIN [Suspect]
     Route: 048
  2. ANTIHYPERTENSIVES [Concomitant]
  3. ALL OTHER THERAPEUTIC PRODUCTS [Concomitant]
  4. GINKGO BILOBA [Concomitant]
  5. ALL OTHER THERAPEUTIC PRODUCTS [Concomitant]
  6. MULTI-VITAMINS [Concomitant]
  7. COQ10 [Concomitant]
  8. HAWTHORN [Concomitant]
  9. CALCIUM CARBONATE [Concomitant]
  10. BIOTIN [Concomitant]
  11. VITAMIN D [Concomitant]
  12. ZANTAC [Concomitant]
  13. PLAVIX [Suspect]
     Indication: STENT PLACEMENT
     Route: 048
     Dates: start: 20110222
  14. VITAMIN B COMPLEX CAP [Concomitant]

REACTIONS (7)
  - VASCULAR OCCLUSION [None]
  - RECTAL HAEMORRHAGE [None]
  - DIARRHOEA [None]
  - ABDOMINAL DISCOMFORT [None]
  - MOUTH HAEMORRHAGE [None]
  - HEADACHE [None]
  - ABDOMINAL PAIN [None]
